FAERS Safety Report 9633204 (Version 1)
Quarter: 2013Q4

REPORT INFORMATION
  Report Type: Spontaneous
  Country: US (occurrence: None)
  Receive Date: 20131018
  Receipt Date: 20131018
  Transmission Date: 20140711
  Serious: No
  Sender: FDA-Public Use
  Company Number: None

PATIENT
  Age: 38 Year
  Sex: Female
  Weight: 61.69 kg

DRUGS (2)
  1. PRAMIPEXOLE [Suspect]
     Indication: RESTLESS LEGS SYNDROME
     Route: 048
  2. SINEMET [Suspect]
     Indication: SLEEP DISORDER
     Dosage: BEDTIME
     Route: 048

REACTIONS (5)
  - Hypersexuality [None]
  - Impulse-control disorder [None]
  - Visual impairment [None]
  - Memory impairment [None]
  - Cognitive disorder [None]
